FAERS Safety Report 8853398 (Version 1)
Quarter: 2012Q4

REPORT INFORMATION
  Report Type: 
  Country: US (occurrence: US)
  Receive Date: 20121022
  Receipt Date: 20121022
  Transmission Date: 20130627
  Serious: No
  Sender: FDA-Public Use
  Company Number: US-009507513-1210USA008609

PATIENT
  Sex: Female

DRUGS (1)
  1. NUVARING [Suspect]
     Indication: CONTRACEPTION
     Dosage: 0.015/0.012 mg
     Route: 067

REACTIONS (3)
  - Vulvovaginal pain [Recovered/Resolved]
  - Product quality issue [Unknown]
  - Device breakage [Unknown]
